FAERS Safety Report 6994680-4 (Version None)
Quarter: 2010Q3

REPORT INFORMATION
  Report Type: 
  Country: None (occurrence: None)
  Receive Date: 20100915
  Receipt Date: 20100831
  Transmission Date: 20110219
  Serious: Yes (Hospitalization)
  Sender: FDA-Public Use
  Company Number: USA/USA/10/0013621

PATIENT
  Age: 62 Year
  Sex: Female
  Weight: 66.14 kg

DRUGS (10)
  1. GLIMEPIRIDE [Suspect]
     Indication: TYPE 2 DIABETES MELLITUS
     Dosage: 4 MG, 1 IN 1 D, PER ORAL, 4 MG, 1 IN 1 D, PER ORAL, 2 MG, 2 IN 1 D, PER ORAL
     Route: 048
     Dates: start: 20070101, end: 20100317
  2. GLIMEPIRIDE [Suspect]
     Indication: TYPE 2 DIABETES MELLITUS
     Dosage: 4 MG, 1 IN 1 D, PER ORAL, 4 MG, 1 IN 1 D, PER ORAL, 2 MG, 2 IN 1 D, PER ORAL
     Route: 048
     Dates: start: 20100318, end: 20100329
  3. GLIMEPIRIDE [Suspect]
     Indication: TYPE 2 DIABETES MELLITUS
     Dosage: 4 MG, 1 IN 1 D, PER ORAL, 4 MG, 1 IN 1 D, PER ORAL, 2 MG, 2 IN 1 D, PER ORAL
     Route: 048
     Dates: start: 20100403
  4. SINGLE BLIND PLACEBO [Suspect]
     Indication: TYPE 2 DIABETES MELLITUS
     Dosage: PER ORAL
     Route: 048
     Dates: start: 20100318, end: 20100329
  5. METFORMIN HCL [Suspect]
     Indication: TYPE 2 DIABETES MELLITUS
     Dosage: 500 M G, 2 IN 1 D, PER ORAL, 500 MG, 2 IN 1 D, PER ORAL, 500 MG, 2 IN 1 D, PER ORAL
     Route: 048
     Dates: start: 20070101, end: 20100317
  6. METFORMIN HCL [Suspect]
     Indication: TYPE 2 DIABETES MELLITUS
     Dosage: 500 M G, 2 IN 1 D, PER ORAL, 500 MG, 2 IN 1 D, PER ORAL, 500 MG, 2 IN 1 D, PER ORAL
     Route: 048
     Dates: start: 20100318, end: 20100329
  7. METFORMIN HCL [Suspect]
     Indication: TYPE 2 DIABETES MELLITUS
     Dosage: 500 M G, 2 IN 1 D, PER ORAL, 500 MG, 2 IN 1 D, PER ORAL, 500 MG, 2 IN 1 D, PER ORAL
     Route: 048
     Dates: start: 20100403
  8. LISINOPRIL [Concomitant]
  9. DARVOCET N (PROPACET) [Concomitant]
  10. LIALDA [Concomitant]

REACTIONS (16)
  - BLOOD PRESSURE INCREASED [None]
  - CHEST PAIN [None]
  - FIBULA FRACTURE [None]
  - HAEMATOCRIT DECREASED [None]
  - HAEMOGLOBIN DECREASED [None]
  - LENS DISLOCATION [None]
  - OCULAR HYPERAEMIA [None]
  - PAIN IN EXTREMITY [None]
  - RETINAL INJURY [None]
  - RIB FRACTURE [None]
  - ROAD TRAFFIC ACCIDENT [None]
  - SKIN LACERATION [None]
  - SPINAL DISORDER [None]
  - TIBIA FRACTURE [None]
  - TRAUMATIC BRAIN INJURY [None]
  - VISUAL ACUITY REDUCED [None]
